FAERS Safety Report 11003785 (Version 1)
Quarter: 2015Q2

REPORT INFORMATION
  Report Type: Spontaneous
  Country: US (occurrence: None)
  Receive Date: 20150407
  Receipt Date: 20150407
  Transmission Date: 20150821
  Serious: Yes (Hospitalization)
  Sender: FDA-Public Use
  Company Number: IPC201503-000183

PATIENT
  Age: 36 Year
  Sex: Female
  Weight: 52.3 kg

DRUGS (11)
  1. PARACETAMOL (ACETAMINOPHEN) [Suspect]
     Active Substance: ACETAMINOPHEN
     Indication: ABDOMINAL PAIN
     Dosage: 3X325 MG TABLETS ONE-TIME DOSE, ORAL
     Route: 048
  2. PARACETAMOL (ACETAMINOPHEN) [Suspect]
     Active Substance: ACETAMINOPHEN
     Indication: PROCEDURAL PAIN
     Dosage: 3X325 MG TABLETS ONE-TIME DOSE, ORAL
     Route: 048
  3. CIPROFLOXACIN (CIPROFLOXACIN) (CIPROFLOXACIN) [Suspect]
     Active Substance: CIPROFLOXACIN
  4. PIPERACILLIN/TAZOBACTAM [Suspect]
     Active Substance: PIPERACILLIN SODIUM\TAZOBACTAM SODIUM
  5. KETOROLAC (KETOROLAC) [Suspect]
     Active Substance: KETOROLAC TROMETHAMINE
  6. ONDANSETRON (ONDANSETRON) (ONDANSETRON) [Suspect]
     Active Substance: ONDANSETRON
  7. MORPHINE (MORPHINE) (MORPHINE) [Suspect]
     Active Substance: MORPHINE
  8. HYDROMORPHONE (HYDROMORPHONE) [Suspect]
     Active Substance: HYDROMORPHONE
  9. CEFAZOLIN (CEFAZOLIN) [Suspect]
     Active Substance: CEFAZOLIN
  10. METRONIDAZOLE (METRONIDAZOLE) (METRONIDAZOLE) [Suspect]
     Active Substance: METRONIDAZOLE
  11. ENOXAPARIN SODIUM. [Suspect]
     Active Substance: ENOXAPARIN SODIUM

REACTIONS (2)
  - Acute hepatic failure [None]
  - Anaemia [None]
